FAERS Safety Report 12309919 (Version 1)
Quarter: 2016Q2

REPORT INFORMATION
  Report Type: Spontaneous
  Country: JP (occurrence: JP)
  Receive Date: 20160427
  Receipt Date: 20160427
  Transmission Date: 20160815
  Serious: Yes (Other)
  Sender: FDA-Public Use
  Company Number: JP-GLAXOSMITHKLINE-JP2016JPN057503

PATIENT
  Sex: Female
  Weight: 34 kg

DRUGS (12)
  1. LAMICTAL [Suspect]
     Active Substance: LAMOTRIGINE
     Dosage: 5 MG, BID
     Route: 048
     Dates: start: 20141030, end: 20141111
  2. LAMICTAL [Suspect]
     Active Substance: LAMOTRIGINE
     Dosage: 30 MG, BID
     Route: 048
     Dates: start: 20150324, end: 20150415
  3. LAMICTAL [Suspect]
     Active Substance: LAMOTRIGINE
     Dosage: 45 MG, BID
     Route: 048
     Dates: start: 20150618, end: 20150729
  4. TOPINA [Concomitant]
     Active Substance: TOPIRAMATE
     Indication: TEMPORAL LOBE EPILEPSY
     Dosage: 100 MG, 1D
     Dates: start: 20131213, end: 20150123
  5. LAMICTAL [Suspect]
     Active Substance: LAMOTRIGINE
     Dosage: 10 MG, BID
     Route: 048
     Dates: start: 20141112, end: 20141209
  6. LAMICTAL [Suspect]
     Active Substance: LAMOTRIGINE
     Dosage: 20 MG, BID
     Route: 048
     Dates: start: 20150122, end: 20150211
  7. LAMICTAL [Suspect]
     Active Substance: LAMOTRIGINE
     Dosage: 25 MG, BID
     Route: 048
     Dates: start: 20150212, end: 20150323
  8. MYSTAN [Concomitant]
     Active Substance: CLOBAZAM
     Indication: TEMPORAL LOBE EPILEPSY
     Dosage: 10 MG, 1D
     Dates: start: 20131218
  9. LAMICTAL [Suspect]
     Active Substance: LAMOTRIGINE
     Dosage: 35 MG, BID
     Route: 048
     Dates: start: 20150416, end: 20150617
  10. LAMICTAL [Suspect]
     Active Substance: LAMOTRIGINE
     Dosage: 50 MG, BID
     Route: 048
     Dates: start: 20150730
  11. LAMICTAL [Suspect]
     Active Substance: LAMOTRIGINE
     Indication: TEMPORAL LOBE EPILEPSY
     Dosage: 5 MG, QD
     Route: 048
     Dates: start: 20141016, end: 20141029
  12. LAMICTAL [Suspect]
     Active Substance: LAMOTRIGINE
     Dosage: 15 MG, BID
     Route: 048
     Dates: start: 20141210, end: 20150121

REACTIONS (2)
  - Investigation abnormal [Unknown]
  - Encephalopathy [Unknown]
